FAERS Safety Report 7488184-2 (Version None)
Quarter: 2011Q2

REPORT INFORMATION
  Report Type: 
  Country: None (occurrence: None)
  Receive Date: 20110518
  Receipt Date: 20110509
  Transmission Date: 20111010
  Serious: Yes (Other)
  Sender: FDA-Public Use
  Company Number: ES-ASTRAZENECA-2011SE27379

PATIENT
  Age: 76 Year
  Sex: Female

DRUGS (1)
  1. BELOKEN [Suspect]
     Route: 048
     Dates: start: 20101228, end: 20101231

REACTIONS (2)
  - DRUG PRESCRIBING ERROR [None]
  - BRADYCARDIA [None]
